FAERS Safety Report 4618260-0 (Version None)
Quarter: 2005Q1

REPORT INFORMATION
  Report Type: 
  Country: None (occurrence: None)
  Receive Date: 20050324
  Receipt Date: 20050308
  Transmission Date: 20050727
  Serious: Yes (Hospitalization)
  Sender: FDA-Public Use
  Company Number: 2005000504

PATIENT
  Age: 63 Year
  Sex: Male

DRUGS (6)
  1. ERLOTINIB HCL [Suspect]
     Indication: NON-SMALL CELL LUNG CANCER
     Dosage: 150 MG (QD), ORAL
     Route: 048
     Dates: start: 20050211
  2. ERLOTINIB HCL [Suspect]
  3. PANTOPRAZOLE (PANTOPRAZOLE) [Concomitant]
  4. MORPHINE [Concomitant]
  5. FUROSEMIDE [Concomitant]
  6. MORPHINE SULFATE [Concomitant]

REACTIONS (3)
  - COUGH [None]
  - DYSPNOEA [None]
  - JAUNDICE [None]
